FAERS Safety Report 7405324-1 (Version None)
Quarter: 2011Q2

REPORT INFORMATION
  Report Type: 
  Country: None (occurrence: None)
  Receive Date: 20110411
  Receipt Date: 20110331
  Transmission Date: 20111010
  Serious: Yes (Other)
  Sender: FDA-Public Use
  Company Number: PHHY2011BR28078

PATIENT
  Sex: Female

DRUGS (3)
  1. ASPIRIN [Concomitant]
     Dosage: 1 DF, QD
     Route: 048
  2. BENICAR AMLO [Concomitant]
     Indication: BLOOD PRESSURE
     Dosage: 1 DF, BID
     Dates: start: 20100901
  3. TRILEPTAL [Suspect]
     Indication: CEREBROVASCULAR ACCIDENT
     Dosage: 0.5 DF, BID
     Route: 048
     Dates: start: 20110211

REACTIONS (3)
  - ASTHENIA [None]
  - GAIT DISTURBANCE [None]
  - BLOOD PRESSURE INADEQUATELY CONTROLLED [None]
